FAERS Safety Report 11988605 (Version 1)
Quarter: 2016Q1

REPORT INFORMATION
  Report Type: Spontaneous
  Country: FI (occurrence: FI)
  Receive Date: 20160202
  Receipt Date: 20160202
  Transmission Date: 20160526
  Serious: Yes (Disabling)
  Sender: FDA-Public Use
  Company Number: FI-009507513-1601FIN010230

PATIENT
  Age: 78 Year
  Sex: Female

DRUGS (3)
  1. EZETROL [Suspect]
     Active Substance: EZETIMIBE
     Indication: BLOOD CHOLESTEROL
     Dosage: ONCE A DAY
     Route: 048
     Dates: start: 201504, end: 201507
  2. OLMETEC [Concomitant]
     Active Substance: OLMESARTAN MEDOXOMIL
     Indication: CORONARY ARTERY DISEASE
     Dosage: UNK
  3. JANUVIA [Concomitant]
     Active Substance: SITAGLIPTIN PHOSPHATE
     Indication: DIABETES MELLITUS
     Dosage: UNK

REACTIONS (5)
  - Gait disturbance [Not Recovered/Not Resolved]
  - Myalgia [Not Recovered/Not Resolved]
  - Haematochezia [Recovered/Resolved]
  - Constipation [Recovered/Resolved]
  - Acne [Unknown]

NARRATIVE: CASE EVENT DATE: 2015
